FAERS Safety Report 4556785-7 (Version None)
Quarter: 2005Q1

REPORT INFORMATION
  Report Type: 
  Country: None (occurrence: None)
  Receive Date: 20050120
  Receipt Date: 20050113
  Transmission Date: 20050727
  Serious: Yes (Other)
  Sender: FDA-Public Use
  Company Number: FR-ROCHE-392231

PATIENT
  Age: 59 Year
  Sex: Male

DRUGS (11)
  1. NICARDIPINE HCL [Suspect]
     Indication: HYPERTENSION
     Route: 042
  2. AMAREL [Concomitant]
  3. DAFALGAN [Concomitant]
  4. DAFLON [Concomitant]
  5. INNOHEP [Concomitant]
     Dosage: REPORTED AS HEPARIN FRACTION.
  6. METFORMIN HCL [Concomitant]
  7. NIFEDIPINE [Concomitant]
  8. VALPROATE [Concomitant]
  9. INSULIN [Concomitant]
  10. ZOLOFT [Concomitant]
  11. DURAGESIC [Concomitant]

REACTIONS (1)
  - OXYGEN SATURATION DECREASED [None]
